FAERS Safety Report 5943324-9 (Version None)
Quarter: 2008Q4

REPORT INFORMATION
  Report Type: 
  Country: None (occurrence: None)
  Receive Date: 20081106
  Receipt Date: 20081103
  Transmission Date: 20090506
  Serious: Yes (Death, Other)
  Sender: FDA-Public Use
  Company Number: PHBS2008IT06200

PATIENT
  Age: 46 Year
  Sex: Male

DRUGS (7)
  1. CYCLOSPORINE [Suspect]
     Indication: LIVER TRANSPLANT
     Dosage: 150 + 150 MG
     Route: 065
  2. STEROIDS NOS [Suspect]
     Dosage: 20 MG
     Route: 065
  3. FOSAMPRENAVIR [Suspect]
  4. RITONAVIR [Suspect]
  5. ENFUVIRTIDE [Suspect]
  6. TENOFOVIR [Suspect]
  7. LAMIVUDINE [Suspect]

REACTIONS (6)
  - ASCITES [None]
  - CARDIAC TAMPONADE [None]
  - CYTOMEGALOVIRUS INFECTION [None]
  - DIALYSIS [None]
  - ORAL CANDIDIASIS [None]
  - RENAL FAILURE ACUTE [None]
